FAERS Safety Report 21952619 (Version 1)
Quarter: 2023Q1

REPORT INFORMATION
  Report Type: Report from Study
  Country: US (occurrence: US)
  Receive Date: 20230203
  Receipt Date: 20230203
  Transmission Date: 20230418
  Serious: Yes (Other)
  Sender: FDA-Public Use
  Company Number: US-EXELIXIS-CABO-22050021

PATIENT
  Sex: Male
  Weight: 97.5 kg

DRUGS (8)
  1. CABOMETYX [Suspect]
     Active Substance: CABOZANTINIB S-MALATE
     Indication: Renal cell carcinoma
     Dosage: 40 MG, QD
     Route: 048
     Dates: start: 20220122
  2. METOLAZONE [Concomitant]
     Active Substance: METOLAZONE
  3. PROTONIX [Concomitant]
     Active Substance: PANTOPRAZOLE SODIUM
  4. ROSUVASTATIN [Concomitant]
     Active Substance: ROSUVASTATIN
  5. ASPIRIN [Concomitant]
     Active Substance: ASPIRIN
  6. NAPROXEN [Concomitant]
     Active Substance: NAPROXEN
  7. VITAMINS [Concomitant]
     Active Substance: VITAMINS
  8. AZO BLADDER CONTROL WITH GO LESS [Concomitant]

REACTIONS (4)
  - Epistaxis [Not Recovered/Not Resolved]
  - Nail bed disorder [Not Recovered/Not Resolved]
  - Acne [Not Recovered/Not Resolved]
  - Pain in extremity [Not Recovered/Not Resolved]
